FAERS Safety Report 20895026 (Version 1)
Quarter: 2022Q2

REPORT INFORMATION
  Report Type: Report from Study
  Country: US (occurrence: US)
  Receive Date: 20220531
  Receipt Date: 20220531
  Transmission Date: 20220721
  Serious: Yes (Congenital Anomaly, Other)
  Sender: FDA-Public Use
  Company Number: US-ViiV Healthcare Limited-US2022GSK085295

PATIENT

DRUGS (4)
  1. ZIDOVUDINE [Suspect]
     Active Substance: ZIDOVUDINE
     Indication: HIV infection
     Dosage: 2 MG/KG, PER HOUR
     Route: 064
     Dates: start: 20130128, end: 20130128
  2. ZIDOVUDINE [Suspect]
     Active Substance: ZIDOVUDINE
     Dosage: 1 MG/KG, PER HOUR
     Route: 064
     Dates: start: 20130128, end: 20130129
  3. LAMIVUDINE AND ZIDOVUDINE [Suspect]
     Active Substance: LAMIVUDINE\ZIDOVUDINE
     Indication: HIV infection
     Dosage: 2 DF, QD
     Route: 064
     Dates: start: 20120816
  4. LOPINAVIR\RITONAVIR [Suspect]
     Active Substance: LOPINAVIR\RITONAVIR
     Indication: HIV infection
     Dosage: 4 DF, QD
     Route: 064
     Dates: start: 20120816

REACTIONS (5)
  - Congenital choroid plexus cyst [Recovered/Resolved]
  - Gastrointestinal disorder congenital [Recovered/Resolved]
  - Trisomy 18 [Recovered/Resolved]
  - Low birth weight baby [Unknown]
  - Foetal exposure during pregnancy [Unknown]
